FAERS Safety Report 4463147-X (Version None)
Quarter: 2004Q3

REPORT INFORMATION
  Report Type: 
  Country: None (occurrence: None)
  Receive Date: 20040930
  Receipt Date: 20040920
  Transmission Date: 20050211
  Serious: Yes (Hospitalization)
  Sender: FDA-Public Use
  Company Number: US-JNJFOC-20040906341

PATIENT
  Age: 42 Year
  Sex: Male
  Weight: 81.65 kg

DRUGS (1)
  1. ULTRAM [Suspect]
     Indication: BACK PAIN
     Route: 049

REACTIONS (9)
  - ABDOMINAL PAIN UPPER [None]
  - CHEST PAIN [None]
  - DEPRESSED LEVEL OF CONSCIOUSNESS [None]
  - DIZZINESS [None]
  - FEELING HOT [None]
  - GAIT DISTURBANCE [None]
  - MOVEMENT DISORDER [None]
  - PARESIS [None]
  - SOMNOLENCE [None]
